FAERS Safety Report 15720228 (Version 6)
Quarter: 2019Q1

REPORT INFORMATION
  Report Type: Spontaneous
  Country: ES (occurrence: ES)
  Receive Date: 20181213
  Receipt Date: 20190117
  Transmission Date: 20190417
  Serious: Yes (Other)
  Sender: FDA-Public Use
  Company Number: PHHY2018ES184430

PATIENT
  Sex: Male

DRUGS (1)
  1. MAXITROL [Suspect]
     Active Substance: DEXAMETHASONE\NEOMYCIN SULFATE\POLYMYXIN B SULFATE
     Indication: POSTOPERATIVE CARE
     Route: 047

REACTIONS (3)
  - Product packaging quantity issue [Unknown]
  - Blindness unilateral [Not Recovered/Not Resolved]
  - Suspected product quality issue [Unknown]
